FAERS Safety Report 24591124 (Version 1)
Quarter: 2024Q4

REPORT INFORMATION
  Report Type: Spontaneous
  Country: US (occurrence: US)
  Receive Date: 20241107
  Receipt Date: 20241107
  Transmission Date: 20250115
  Serious: Yes (Other)
  Sender: SANOFI AVENTIS
  Company Number: US-SA-2024SA322595

PATIENT
  Age: 58 Year
  Sex: Male
  Weight: 115.91 kg

DRUGS (1)
  1. DUPIXENT [Suspect]
     Active Substance: DUPILUMAB
     Indication: Eczema

REACTIONS (9)
  - Deafness [Unknown]
  - Tinnitus [Not Recovered/Not Resolved]
  - Eczema [Unknown]
  - Pruritus [Unknown]
  - Sinusitis [Unknown]
  - Nasopharyngitis [Unknown]
  - Off label use [Unknown]
  - Therapeutic response decreased [Unknown]
  - Intentional dose omission [Unknown]
